FAERS Safety Report 5399088-3 (Version None)
Quarter: 2007Q3

REPORT INFORMATION
  Report Type: 
  Country: None (occurrence: None)
  Receive Date: 20070727
  Receipt Date: 20060926
  Transmission Date: 20080115
  Serious: No
  Sender: FDA-Public Use
  Company Number: A0621553A

PATIENT
  Sex: Female

DRUGS (6)
  1. LOTRONEX [Suspect]
     Indication: IRRITABLE BOWEL SYNDROME
     Dosage: 1MG PER DAY
     Route: 048
  2. HYZAAR [Concomitant]
  3. LIPITOR [Concomitant]
  4. DONNATAL [Concomitant]
  5. TOPROL-XL [Concomitant]
  6. NEXIUM [Concomitant]

REACTIONS (2)
  - PRURITUS [None]
  - RASH [None]
